FAERS Safety Report 24682895 (Version 1)
Quarter: 2024Q4

REPORT INFORMATION
  Report Type: Spontaneous
  Country: US (occurrence: US)
  Receive Date: 20241201
  Receipt Date: 20241201
  Transmission Date: 20250114
  Serious: No
  Sender: ELI LILLY AND COMPANY
  Company Number: US-ELI_LILLY_AND_COMPANY-US202411017354

PATIENT
  Age: 39 Year
  Sex: Female

DRUGS (1)
  1. ZEPBOUND [Suspect]
     Active Substance: TIRZEPATIDE
     Indication: Product used for unknown indication
     Dosage: 2.5 MG, WEEKLY (1/W)
     Route: 058
     Dates: start: 20241114, end: 202411

REACTIONS (5)
  - Inflammation [Unknown]
  - Peripheral swelling [Unknown]
  - Arthralgia [Unknown]
  - Muscle discomfort [Unknown]
  - Swelling face [Unknown]

NARRATIVE: CASE EVENT DATE: 20241101
